FAERS Safety Report 8465318-4 (Version None)
Quarter: 2012Q2

REPORT INFORMATION
  Report Type: 
  Country: None (occurrence: None)
  Receive Date: 20120626
  Receipt Date: 20120618
  Transmission Date: 20120825
  Serious: Yes (Hospitalization)
  Sender: FDA-Public Use
  Company Number: US-BAYER-2012-061607

PATIENT
  Age: 21 Year
  Sex: Female
  Weight: 51.247 kg

DRUGS (15)
  1. LEVAQUIN [Concomitant]
     Dosage: 750 MG, DAILY
     Dates: start: 20080208
  2. PREDNISONE [Concomitant]
     Dosage: TAPERING 10 MG DAILY FOR THREE DAYS, 10 MG DAILY FOR THREE DAYS, 4 MG DAILY FOR THREE DAYS THEN DISC
     Route: 048
     Dates: start: 20080212
  3. DUAC [Concomitant]
     Dosage: UNK
     Dates: start: 20080102
  4. FACTIVE [Concomitant]
     Dosage: 320 MG, QD
     Route: 048
     Dates: start: 20080206
  5. PREVACID [Concomitant]
     Dosage: 30 MG, DAILY
     Route: 048
     Dates: start: 20080208
  6. PREDNISONE [Concomitant]
     Dosage: 40 MG, UNK
     Route: 048
     Dates: start: 20080209
  7. RETIN-A MICRO [Concomitant]
     Dosage: UNK
     Dates: start: 20080102
  8. HYDROCODONE BITARTRATE + ACETAMINOPHEN [Concomitant]
     Dosage: 7.5/500, UNK, UNK
     Dates: start: 20080128
  9. OXYCODONE HCL AND ACETAMINOPHEN [Concomitant]
     Dosage: 5/500, UNK, UNK
     Dates: start: 20080130
  10. ZITHROMAX [Concomitant]
     Indication: PAIN
     Dosage: UNK
     Dates: start: 20080206
  11. SOLU-MEDROL [Concomitant]
     Dosage: 40 MG, [EVERY] 8 HOURS
     Route: 042
     Dates: start: 20080208
  12. LORTAB [Concomitant]
     Indication: PAIN
     Dosage: 5 MG, EVERY SIX HOURS AS NEEDED
     Dates: start: 20080212
  13. LORTAB [Concomitant]
     Dosage: 7.5 MG, UNK
  14. NAPROXEN [Concomitant]
     Dosage: UNK
     Dates: start: 20080125
  15. YASMIN [Suspect]
     Dosage: UNK

REACTIONS (1)
  - PULMONARY EMBOLISM [None]
